FAERS Safety Report 9234456 (Version 3)
Quarter: 2013Q4

REPORT INFORMATION
  Report Type: Spontaneous
  Country: US (occurrence: US)
  Receive Date: 20130416
  Receipt Date: 20131024
  Transmission Date: 20140711
  Serious: No
  Sender: FDA-Public Use
  Company Number: US-009507513-1304USA006841

PATIENT
  Age: 27 Year
  Sex: Female
  Weight: 77.55 kg

DRUGS (3)
  1. NEXPLANON [Suspect]
     Indication: CONTRACEPTION
     Dosage: 1 ROD, UNK
     Route: 059
     Dates: start: 20130411
  2. NEXPLANON [Suspect]
     Dosage: 1 ROD, UNK
     Route: 059
     Dates: start: 20130411, end: 20130412
  3. NEXPLANON [Suspect]
     Dosage: UNK
     Route: 059
     Dates: start: 20090409, end: 20120329

REACTIONS (4)
  - Metrorrhagia [Unknown]
  - Medical device complication [Recovered/Resolved]
  - Overdose [Unknown]
  - Device deployment issue [Unknown]
